FAERS Safety Report 18139604 (Version 3)
Quarter: 2020Q4

REPORT INFORMATION
  Report Type: Spontaneous
  Country: US (occurrence: US)
  Receive Date: 20200812
  Receipt Date: 20201015
  Transmission Date: 20210113
  Serious: No
  Sender: FDA-Public Use
  Company Number: US-PFIZER INC-2020309679

PATIENT
  Age: 70 Year
  Sex: Female

DRUGS (1)
  1. EUCRISA [Suspect]
     Active Substance: CRISABOROLE
     Dosage: UNK, AS NEEDED (APPLY TO EYELIDS UNTIL WELL HEALED THEN PRN (AS NEEDED))

REACTIONS (3)
  - Product use issue [Unknown]
  - Off label use [Unknown]
  - Asthma [Unknown]
